FAERS Safety Report 20559783 (Version 1)
Quarter: 2022Q1

REPORT INFORMATION
  Report Type: Spontaneous
  Country: TR (occurrence: TR)
  Receive Date: 20220307
  Receipt Date: 20220307
  Transmission Date: 20220423
  Serious: Yes (Hospitalization)
  Sender: FDA-Public Use
  Company Number: TR-NOVARTISPH-NVSC2022TR051152

PATIENT
  Age: 56 Year
  Sex: Female

DRUGS (1)
  1. TEGRETOL [Suspect]
     Active Substance: CARBAMAZEPINE
     Indication: Herpes zoster
     Dosage: 1 DOSAGE FORM, QD
     Route: 065

REACTIONS (5)
  - Swelling face [Unknown]
  - Erythema [Unknown]
  - Blister [Unknown]
  - Tracheal stenosis [Unknown]
  - Product use in unapproved indication [Unknown]
